FAERS Safety Report 5498502-2 (Version None)
Quarter: 2007Q4

REPORT INFORMATION
  Report Type: 
  Country: None (occurrence: None)
  Receive Date: 20071025
  Receipt Date: 20071025
  Transmission Date: 20080405
  Serious: Yes (Life-Threatening, Hospitalization)
  Sender: FDA-Public Use
  Company Number: None

PATIENT
  Sex: Male

DRUGS (2)
  1. RIBAVIRIN [Suspect]
     Indication: HEPATITIS C
     Dosage: 600MG AM 400MG PM PO
     Route: 048
     Dates: start: 20070824, end: 20071007
  2. TRIZIVIR [Suspect]
     Indication: HIV INFECTION
     Dosage: FIXED DOSE BID PO
     Route: 048

REACTIONS (1)
  - HAEMOGLOBIN DECREASED [None]
